FAERS Safety Report 12416824 (Version 3)
Quarter: 2016Q3

REPORT INFORMATION
  Report Type: Spontaneous
  Country: US (occurrence: US)
  Receive Date: 20160530
  Receipt Date: 20160711
  Transmission Date: 20161109
  Serious: Yes (Other)
  Sender: FDA-Public Use
  Company Number: US-PFIZER INC-2016279845

PATIENT
  Age: 15 Year
  Sex: Female
  Weight: 49.89 kg

DRUGS (5)
  1. FLONASE [Suspect]
     Active Substance: FLUTICASONE PROPIONATE
     Indication: SNORING
     Dosage: UNK
  2. KLONOPIN [Suspect]
     Active Substance: CLONAZEPAM
     Dosage: 0.25 MG, SINGLE
     Dates: start: 20160523, end: 20160523
  3. SERTRALINE HCL [Suspect]
     Active Substance: SERTRALINE HYDROCHLORIDE
     Indication: DEPRESSED MOOD
     Dosage: 12.5 MG, DAILY
     Dates: start: 20160524, end: 201605
  4. ZOLOFT [Suspect]
     Active Substance: SERTRALINE HYDROCHLORIDE
     Indication: DEPRESSION
     Dosage: 12.5 MG, DAILY (1/2 OF 25 MG TABLET DAILY)
     Dates: start: 20160524, end: 20160526
  5. PROZAC [Suspect]
     Active Substance: FLUOXETINE HYDROCHLORIDE
     Dosage: UNK

REACTIONS (9)
  - Dyspnoea [Unknown]
  - Pulmonary pain [Unknown]
  - Panic attack [Recovered/Resolved]
  - Condition aggravated [Recovered/Resolved]
  - Hyperventilation [Recovered/Resolved]
  - Intentional product use issue [Unknown]
  - Choking [Unknown]
  - Product use issue [Unknown]
  - Syncope [Recovered/Resolved]

NARRATIVE: CASE EVENT DATE: 20160524
